FAERS Safety Report 8593800-8 (Version None)
Quarter: 2012Q3

REPORT INFORMATION
  Report Type: 
  Country: None (occurrence: None)
  Receive Date: 20120814
  Receipt Date: 20120808
  Transmission Date: 20120928
  Serious: Yes (Hospitalization)
  Sender: FDA-Public Use
  Company Number: JP-ROCHE-1069051

PATIENT
  Sex: Female

DRUGS (3)
  1. LOSARTAN POTASSIUM [Concomitant]
     Dates: start: 20100618
  2. OMALIZUMAB [Suspect]
     Indication: ASTHMA
     Route: 058
     Dates: start: 20090806
  3. CRESTOR [Concomitant]
     Dates: start: 20100618

REACTIONS (2)
  - CHOLANGITIS [None]
  - CHOLECYSTITIS [None]
